FAERS Safety Report 9409495 (Version 4)
Quarter: 2014Q1

REPORT INFORMATION
  Report Type: Report from Study
  Country: FR (occurrence: FR)
  Receive Date: 20130719
  Receipt Date: 20140121
  Transmission Date: 20141002
  Serious: Yes (Hospitalization)
  Sender: FDA-Public Use
  Company Number: FR-PFIZER INC-2013205922

PATIENT
  Age: 60 Year
  Sex: Female
  Weight: 44 kg

DRUGS (10)
  1. CISPLATIN [Suspect]
     Indication: NON-SMALL CELL LUNG CANCER
     Dosage: ON DAY 1 OF 21 DAYS
     Route: 042
     Dates: start: 20130705
  2. PEMETREXED [Suspect]
     Indication: NON-SMALL CELL LUNG CANCER
     Dosage: ON DAY 1 OF 21 DAYS
     Route: 042
     Dates: start: 20130705
  3. ZOMETA [Concomitant]
     Indication: METASTASES TO BONE
     Dosage: 4 MG, DAILY
     Route: 048
     Dates: start: 20130704
  4. TRAMADOL LP [Concomitant]
     Indication: PAIN
     Dosage: 50 MG, 1X/DAY
     Dates: start: 20130630, end: 20130710
  5. TRAMADOL [Concomitant]
     Indication: PAIN
     Dosage: 50 MG, 1X/DAY
     Route: 048
     Dates: start: 20130630, end: 20130710
  6. SPASFON [Concomitant]
     Indication: GASTRIC DISORDER
     Dosage: AS NEEDED
     Route: 048
     Dates: start: 201306
  7. INEXIUM [Concomitant]
     Indication: PAIN
     Dosage: 40 MG, DAILY
     Route: 048
     Dates: start: 201307
  8. PARACETAMOL [Concomitant]
     Indication: PAIN
     Dosage: 1 G, AS NEEDED
     Route: 048
     Dates: start: 201306
  9. OXYCONTIN [Concomitant]
     Indication: PAIN
     Dosage: 10 MG, 2X/DAY
     Route: 048
     Dates: start: 20130710
  10. OXYNORM [Concomitant]
     Indication: PAIN
     Dosage: 5 MG, 1X/DAY
     Route: 048
     Dates: start: 20130710

REACTIONS (1)
  - General physical health deterioration [Recovered/Resolved]
